FAERS Safety Report 7655458-1 (Version None)
Quarter: 2011Q3

REPORT INFORMATION
  Report Type: 
  Country: None (occurrence: None)
  Receive Date: 20110804
  Receipt Date: 20110726
  Transmission Date: 20111222
  Serious: No
  Sender: FDA-Public Use
  Company Number: US-PFIZER INC-2011170787

PATIENT

DRUGS (1)
  1. CLEOCIN HYDROCHLORIDE [Suspect]
     Dosage: UNK

REACTIONS (1)
  - PRODUCT TASTE ABNORMAL [None]
